FAERS Safety Report 7999556-1 (Version None)
Quarter: 2011Q4

REPORT INFORMATION
  Report Type: 
  Country: None (occurrence: None)
  Receive Date: 20111221
  Receipt Date: 20111209
  Transmission Date: 20120403
  Serious: Yes (Other)
  Sender: FDA-Public Use
  Company Number: GB-GILEAD-2011-0048356

PATIENT
  Sex: Male

DRUGS (6)
  1. WARFARIN SODIUM [Concomitant]
  2. AMBRISENTAN [Suspect]
     Indication: PRODUCT USED FOR UNKNOWN INDICATION
     Route: 065
  3. OXYGEN [Concomitant]
  4. TRAMADOL HCL [Concomitant]
  5. MST                                /00036302/ [Concomitant]
  6. ORAMORPH SR [Concomitant]

REACTIONS (2)
  - LIVER DISORDER [None]
  - HEPATIC ENZYME INCREASED [None]
